FAERS Safety Report 17361847 (Version 1)
Quarter: 2020Q1

REPORT INFORMATION
  Report Type: Spontaneous
  Country: US (occurrence: US)
  Receive Date: 20200131
  Receipt Date: 20200131
  Transmission Date: 20200409
  Serious: Yes (Death, Hospitalization)
  Sender: FDA-Public Use
  Company Number: None

PATIENT
  Age: 77 Year
  Sex: Female
  Weight: 71.55 kg

DRUGS (2)
  1. LISINOPRIL. [Concomitant]
     Active Substance: LISINOPRIL
  2. XELODA [Suspect]
     Active Substance: CAPECITABINE
     Indication: BREAST CANCER STAGE III
     Dosage: ?          QUANTITY:500 CAPSULE(S);?
     Route: 048
     Dates: start: 20190819, end: 20191021

REACTIONS (12)
  - Palmar-plantar erythrodysaesthesia syndrome [None]
  - Asthenia [None]
  - Vomiting [None]
  - Gastric ulcer [None]
  - White blood cell count decreased [None]
  - Platelet count decreased [None]
  - Mucosal inflammation [None]
  - Feeding disorder [None]
  - Diarrhoea [None]
  - Oesophageal ulcer [None]
  - Respiratory failure [None]
  - Malnutrition [None]

NARRATIVE: CASE EVENT DATE: 20191021
